FAERS Safety Report 16032938 (Version 2)
Quarter: 2019Q1

REPORT INFORMATION
  Report Type: Report from Study
  Country: US (occurrence: US)
  Receive Date: 20190305
  Receipt Date: 20190314
  Transmission Date: 20190418
  Serious: Yes (Hospitalization)
  Sender: FDA-Public Use
  Company Number: US-BAXTER-2019BAX004101

PATIENT
  Age: 21 Year
  Sex: Male
  Weight: 55 kg

DRUGS (15)
  1. VINCRISTINE [Suspect]
     Active Substance: VINCRISTINE
     Indication: ACUTE LYMPHOCYTIC LEUKAEMIA
     Dosage: FIRST DOSE
     Route: 042
     Dates: start: 20190103, end: 20190103
  2. MERCAPTOPURINE. [Suspect]
     Active Substance: MERCAPTOPURINE
     Indication: ACUTE LYMPHOCYTIC LEUKAEMIA
     Dosage: FIRST DOSE PRIOR TO SAE WAS ON 20DEC2018 AND LAST DOSE PRIOR TO SAE WAS ON 02JAN2019
     Route: 048
     Dates: start: 20181220, end: 20190102
  3. ACYCLOVIR. [Concomitant]
     Active Substance: ACYCLOVIR
     Indication: PRODUCT USED FOR UNKNOWN INDICATION
     Route: 065
     Dates: start: 20181108
  4. BACTRIM [Concomitant]
     Active Substance: SULFAMETHOXAZOLE\TRIMETHOPRIM
     Indication: PRODUCT USED FOR UNKNOWN INDICATION
     Route: 065
     Dates: start: 20181114
  5. CYCLOPHOSPHAMIDE FOR INJECTION, USP [Suspect]
     Active Substance: CYCLOPHOSPHAMIDE
     Indication: ACUTE LYMPHOCYTIC LEUKAEMIA
     Dosage: FIRST AND LAST DOSE PRIOR TO THE SERIOUS ADVERSE EVENTS (SAES)
     Route: 042
     Dates: start: 20181220, end: 20181220
  6. RUXOLITINIB [Suspect]
     Active Substance: RUXOLITINIB
     Indication: ACUTE LYMPHOCYTIC LEUKAEMIA
     Dosage: DOSAGE FORM: TABLET, INCB18424, FIRST DOSE PRIOR TO SAE WAS ON 20DEC2018 AND LAST DOSE PRIOR TO SAE
     Route: 048
     Dates: start: 20181220, end: 20190102
  7. ONDANSETRON INJECTION, USP-SINGLE DOSE [Suspect]
     Active Substance: ONDANSETRON
     Indication: PRODUCT USED FOR UNKNOWN INDICATION
     Route: 065
     Dates: start: 20181113
  8. METHOTREXATE. [Suspect]
     Active Substance: METHOTREXATE
     Route: 037
     Dates: start: 20181227, end: 20181227
  9. CYTARABINE. [Suspect]
     Active Substance: CYTARABINE
     Indication: ACUTE LYMPHOCYTIC LEUKAEMIA
     Dosage: FIRST DOSE
     Route: 042
     Dates: start: 20181220, end: 20181223
  10. PEGASPARGASE [Suspect]
     Active Substance: PEGASPARGASE
     Indication: ACUTE LYMPHOCYTIC LEUKAEMIA
     Dosage: FIRST AND LAST DOSE PRIOR TO THE SERIOUS ADVERSE EVENTS (SAES)
     Route: 042
     Dates: start: 20190103, end: 20190103
  11. METHOTREXATE. [Suspect]
     Active Substance: METHOTREXATE
     Indication: ACUTE LYMPHOCYTIC LEUKAEMIA
     Dosage: FIRST DOSE
     Route: 037
     Dates: start: 20181220, end: 20181220
  12. CYTARABINE. [Suspect]
     Active Substance: CYTARABINE
     Dosage: LAST DOSE PRIOR TO SAE WAS ON 30DEC2018
     Route: 042
     Dates: start: 20181227, end: 20181230
  13. VINCRISTINE [Suspect]
     Active Substance: VINCRISTINE
     Dosage: LAST DOSE PRIOR TO THE SERIOUS ADVERSE EVENTS (SAES)
     Route: 042
     Dates: start: 20190110, end: 20190110
  14. METHOTREXATE. [Suspect]
     Active Substance: METHOTREXATE
     Route: 037
     Dates: start: 20190103, end: 20190103
  15. METHOTREXATE. [Suspect]
     Active Substance: METHOTREXATE
     Dosage: LAST DOSE PRIOR TO THE SERIOUS ADVERSE EVENTS (SAES)
     Route: 037
     Dates: start: 20190110, end: 20190110

REACTIONS (3)
  - Neutropenia [Recovered/Resolved]
  - Chills [Recovered/Resolved]
  - Nausea [Recovered/Resolved]

NARRATIVE: CASE EVENT DATE: 20190118
